FAERS Safety Report 13668878 (Version 6)
Quarter: 2018Q2

REPORT INFORMATION
  Report Type: Spontaneous
  Country: JP (occurrence: JP)
  Receive Date: 20170620
  Receipt Date: 20180528
  Transmission Date: 20180711
  Serious: Yes (Hospitalization, Other)
  Sender: FDA-Public Use
  Company Number: JP-009507513-1706JPN001602J

PATIENT
  Age: 73 Year
  Sex: Male
  Weight: 55 kg

DRUGS (11)
  1. ELSAMET [Concomitant]
     Dosage: 1 DF, TID
     Route: 048
  2. JANUVIA [Concomitant]
     Active Substance: SITAGLIPTIN PHOSPHATE
     Dosage: 50 MG, QD
     Route: 048
  3. SODIUM RABEPRAZOLE [Concomitant]
     Active Substance: RABEPRAZOLE SODIUM
     Indication: PROPHYLAXIS
     Dosage: 10 MG, QD
     Route: 048
  4. DEXTROMETHORPHAN [Concomitant]
     Active Substance: DEXTROMETHORPHAN
     Indication: PNEUMONIA
     Dosage: 15 MG, TID
     Route: 048
     Dates: start: 20170527
  5. TULOBUTEROL [Concomitant]
     Active Substance: TULOBUTEROL
     Indication: PNEUMONIA
     Dosage: 2.0 MG, QD
     Route: 062
     Dates: start: 20170527, end: 20170613
  6. ZALUTIA [Concomitant]
     Active Substance: TADALAFIL
     Dosage: 5.0 MG, QD
     Route: 048
  7. KEYTRUDA [Suspect]
     Active Substance: PEMBROLIZUMAB
     Indication: SQUAMOUS CELL CARCINOMA OF LUNG
     Dosage: 200 MG, Q3W
     Route: 041
     Dates: start: 20170524, end: 20170524
  8. CALONAL [Concomitant]
     Active Substance: ACETAMINOPHEN
     Dosage: 400 MG, PRN
     Route: 048
  9. TAMSULOSIN HYDROCHLORIDE OD [Concomitant]
     Active Substance: TAMSULOSIN HYDROCHLORIDE
     Dosage: 0.2 MG, QD
     Route: 048
  10. DICLOFENAC SODIUM. [Concomitant]
     Active Substance: DICLOFENAC SODIUM
     Dosage: 25 MG, PRN
     Route: 048
  11. AMBROXOL HYDROCHLORIDE [Concomitant]
     Active Substance: AMBROXOL HYDROCHLORIDE
     Indication: PNEUMONIA
     Dosage: 15 MG, TID
     Route: 048
     Dates: start: 20170527

REACTIONS (4)
  - Insomnia [Not Recovered/Not Resolved]
  - Interstitial lung disease [Recovering/Resolving]
  - Bronchopulmonary aspergillosis [Not Recovered/Not Resolved]
  - Decreased appetite [Not Recovered/Not Resolved]

NARRATIVE: CASE EVENT DATE: 20170527
